FAERS Safety Report 12167988 (Version 1)
Quarter: 2016Q1

REPORT INFORMATION
  Report Type: Spontaneous
  Country: US (occurrence: None)
  Receive Date: 20160309
  Receipt Date: 20160309
  Transmission Date: 20160526
  Serious: Yes (Other)
  Sender: FDA-Public Use
  Company Number: None

PATIENT
  Age: 37 Year
  Sex: Female
  Weight: 68.49 kg

DRUGS (3)
  1. ALEVE [Suspect]
     Active Substance: NAPROXEN SODIUM
     Indication: ARTHRALGIA
     Dosage: 220 MG 1 CAPSULE EVERY 8-12 HOURS BY MOUTH
     Route: 048
     Dates: start: 20160221, end: 20160221
  2. VITAMIN B12 [Concomitant]
     Active Substance: CYANOCOBALAMIN
  3. HAIR, SKIN, NAILS VITAMIN [Concomitant]

REACTIONS (4)
  - Syncope [None]
  - Face injury [None]
  - Seizure [None]
  - Nausea [None]

NARRATIVE: CASE EVENT DATE: 20160221
